FAERS Safety Report 24545788 (Version 2)
Quarter: 2024Q4

REPORT INFORMATION
  Report Type: Spontaneous
  Country: FR (occurrence: FR)
  Receive Date: 20241024
  Receipt Date: 20241121
  Transmission Date: 20250115
  Serious: Yes (Hospitalization)
  Sender: FRESENIUS KABI
  Company Number: None

PATIENT
  Age: 43 Year
  Sex: Female
  Weight: 86 kg

DRUGS (34)
  1. ROPIVACAINE HYDROCHLORIDE [Suspect]
     Active Substance: ROPIVACAINE HYDROCHLORIDE
     Indication: Anaesthesia
     Dosage: UNK
     Dates: start: 20240920, end: 20240920
  2. ROPIVACAINE HYDROCHLORIDE [Suspect]
     Active Substance: ROPIVACAINE HYDROCHLORIDE
     Dosage: UNK
     Dates: start: 20240920, end: 20240920
  3. ROPIVACAINE HYDROCHLORIDE [Suspect]
     Active Substance: ROPIVACAINE HYDROCHLORIDE
     Dosage: UNK
     Dates: start: 20240920, end: 20240920
  4. ROPIVACAINE HYDROCHLORIDE [Suspect]
     Active Substance: ROPIVACAINE HYDROCHLORIDE
     Dosage: UNK
     Dates: start: 20240920, end: 20240920
  5. CIPROFLOXACIN [Suspect]
     Active Substance: CIPROFLOXACIN
     Indication: Agranulocytosis
     Dosage: 800 MILLIGRAM, QD
     Dates: start: 20240912, end: 20240918
  6. CIPROFLOXACIN [Suspect]
     Active Substance: CIPROFLOXACIN
     Dosage: 800 MILLIGRAM, QD
     Dates: start: 20240912, end: 20240918
  7. ACETAMINOPHEN [Suspect]
     Active Substance: ACETAMINOPHEN
     Indication: Angina pectoris
     Dosage: 1 GRAM, 1 DOSE 6 HOURS, IF NECESSARY
     Dates: start: 20240904, end: 20240923
  8. ACETAMINOPHEN [Suspect]
     Active Substance: ACETAMINOPHEN
     Dosage: 1 GRAM, 1 DOSE 6 HOURS, SI BESOIN
     Dates: start: 20240904, end: 20240923
  9. ACETAMINOPHEN [Suspect]
     Active Substance: ACETAMINOPHEN
     Dosage: 1 GRAM, 1 DOSE 6 HOURS, SI BESOIN
     Dates: start: 20240904, end: 20240923
  10. ACETAMINOPHEN [Suspect]
     Active Substance: ACETAMINOPHEN
     Dosage: 1 GRAM, 1 DOSE 6 HOURS, SI BESOIN
     Dates: start: 20240904, end: 20240923
  11. ACETAMINOPHEN [Suspect]
     Active Substance: ACETAMINOPHEN
     Dosage: 1 GRAM, 1 DOSE 6 HOURS, SI BESOIN
     Dates: start: 20240924, end: 20240928
  12. ACETAMINOPHEN [Suspect]
     Active Substance: ACETAMINOPHEN
     Dosage: 1 GRAM, 1 DOSE 6 HOURS, SI BESOIN
     Dates: start: 20240924, end: 20240928
  13. ACETAMINOPHEN [Suspect]
     Active Substance: ACETAMINOPHEN
     Dosage: 1 GRAM, 1 DOSE 6 HOURS, SI BESOIN
     Dates: start: 20240924, end: 20240928
  14. ACETAMINOPHEN [Suspect]
     Active Substance: ACETAMINOPHEN
     Dosage: 1 GRAM, 1 DOSE 6 HOURS, SI BESOIN
     Dates: start: 20240924, end: 20240928
  15. PIPERACILLIN SODIUM [Suspect]
     Active Substance: PIPERACILLIN SODIUM
     Indication: Agranulocytosis
     Dosage: 16 GRAM, QD
     Dates: start: 20240904, end: 20240919
  16. PIPERACILLIN SODIUM [Suspect]
     Active Substance: PIPERACILLIN SODIUM
     Dosage: 16 GRAM, QD
     Dates: start: 20240904, end: 20240919
  17. TAZOBACTAM [Suspect]
     Active Substance: TAZOBACTAM
     Indication: Agranulocytosis
     Dosage: 16 GRAM, QD
     Dates: start: 20240904, end: 20240919
  18. TAZOBACTAM [Suspect]
     Active Substance: TAZOBACTAM
     Dosage: 16 GRAM, QD
     Dates: start: 20240904, end: 20240919
  19. NEFOPAM [Suspect]
     Active Substance: NEFOPAM
     Indication: Angina pectoris
     Dosage: 120 MILLIGRAM, QD
     Dates: start: 20240907, end: 20240918
  20. NEFOPAM [Suspect]
     Active Substance: NEFOPAM
     Dosage: 120 MILLIGRAM, QD
     Dates: start: 20240907, end: 20240918
  21. ENOXAPARIN SODIUM [Suspect]
     Active Substance: ENOXAPARIN SODIUM
     Indication: Thrombosis prophylaxis
     Dosage: 0.4 MILLILITRE, QD
     Dates: start: 20240906, end: 20241003
  22. ENOXAPARIN SODIUM [Suspect]
     Active Substance: ENOXAPARIN SODIUM
     Dosage: 0.4 MILLILITRE, QD
     Dates: start: 20240906, end: 20241003
  23. MORPHINE [Suspect]
     Active Substance: MORPHINE
     Indication: Angina pectoris
     Dosage: 10 MILLIGRAM, QD
     Route: 051
     Dates: start: 20240906, end: 20240923
  24. MORPHINE [Suspect]
     Active Substance: MORPHINE
     Dosage: 10 MILLIGRAM, QD
     Route: 051
     Dates: start: 20240906, end: 20240923
  25. CYANOCOBALAMIN [Suspect]
     Active Substance: CYANOCOBALAMIN
     Indication: Vitamin B12 deficiency
     Dosage: 1 DOSAGE FORM, QD
     Dates: start: 20240919, end: 20240922
  26. CYANOCOBALAMIN [Suspect]
     Active Substance: CYANOCOBALAMIN
     Dosage: 1 DOSAGE FORM, QD
     Dates: start: 20240919, end: 20240922
  27. VITAMIN K [Suspect]
     Active Substance: PHYTONADIONE
     Indication: Vitamin K deficiency
     Dosage: 10 MILLIGRAM
     Dates: start: 20240919, end: 20240919
  28. VITAMIN K [Suspect]
     Active Substance: PHYTONADIONE
     Dosage: 10 MILLIGRAM
     Dates: start: 20240919, end: 20240919
  29. IOBITRIDOL [Suspect]
     Active Substance: IOBITRIDOL
     Indication: Imaging procedure
     Dosage: 3 DOSAGE FORM
     Dates: start: 20240905, end: 20240913
  30. IOBITRIDOL [Suspect]
     Active Substance: IOBITRIDOL
     Dosage: 3 DOSAGE FORM
     Dates: start: 20240905, end: 20240913
  31. FILGRASTIM [Suspect]
     Active Substance: FILGRASTIM
     Indication: Agranulocytosis
     Dosage: 1 DOSAGE FORM, QD
     Dates: start: 20240911, end: 20240913
  32. FILGRASTIM [Suspect]
     Active Substance: FILGRASTIM
     Dosage: 1 DOSAGE FORM, QD
     Dates: start: 20240911, end: 20240913
  33. VANCOMYCIN [Suspect]
     Active Substance: VANCOMYCIN
     Indication: Agranulocytosis
     Dosage: 3 GRAM, QD
     Dates: start: 20240912, end: 20240918
  34. VANCOMYCIN [Suspect]
     Active Substance: VANCOMYCIN
     Dosage: 3 GRAM, QD
     Dates: start: 20240912, end: 20240918

REACTIONS (1)
  - Symmetrical drug-related intertriginous and flexural exanthema [Recovering/Resolving]

NARRATIVE: CASE EVENT DATE: 20240923
